FAERS Safety Report 19001549 (Version 1)
Quarter: 2021Q1

REPORT INFORMATION
  Report Type: Spontaneous
  Country: US (occurrence: US)
  Receive Date: 20210312
  Receipt Date: 20210312
  Transmission Date: 20210420
  Serious: No
  Sender: FDA-Public Use
  Company Number: US-FARMAPROD-202010-1365

PATIENT
  Sex: Female
  Weight: 68.1 kg

DRUGS (9)
  1. CALCIUM/MAGNESIUM/ZINC [Concomitant]
  2. PRAVASTATIN SODIUM. [Concomitant]
     Active Substance: PRAVASTATIN SODIUM
  3. OLMESARTAN/AMLODIPINE/HYDROCHLORTHIAZIDE [Concomitant]
  4. FISH OIL/VITAMINE D3 [Concomitant]
     Dosage: 120 MG?1000 MG CAPSULE
  5. ASPIRINE [Concomitant]
     Active Substance: ASPIRIN
  6. VITAMINE B?12 [Concomitant]
  7. TRAMADOL HCL [Concomitant]
     Active Substance: TRAMADOL HYDROCHLORIDE
  8. OXERVATE [Suspect]
     Active Substance: CENEGERMIN-BKBJ
     Indication: NEUROTROPHIC KERATOPATHY
     Route: 047
     Dates: start: 20201007
  9. OMEPRAZOLE. [Concomitant]
     Active Substance: OMEPRAZOLE
     Dosage: DELAY RELEASE CAPSULE

REACTIONS (1)
  - Wrong technique in product usage process [Unknown]
